FAERS Safety Report 8349554-3 (Version None)
Quarter: 2012Q2

REPORT INFORMATION
  Report Type: 
  Country: None (occurrence: None)
  Receive Date: 20120510
  Receipt Date: 20120503
  Transmission Date: 20120825
  Serious: Yes (Hospitalization)
  Sender: FDA-Public Use
  Company Number: US-BAYER-201024389NA

PATIENT
  Age: 40 Year
  Sex: Female
  Weight: 67.347 kg

DRUGS (9)
  1. AMERGE [Concomitant]
     Indication: MIGRAINE
     Dosage: UNK
     Dates: start: 20000101, end: 20100101
  2. YASMIN [Suspect]
     Indication: ACNE
     Dosage: UNK UNK, QD
     Route: 048
     Dates: start: 20011001, end: 20020901
  3. ANZEMET [Concomitant]
     Dosage: UNK
     Dates: start: 20021001
  4. IBUPROFEN [Concomitant]
     Indication: CHEST PAIN
     Dosage: 800 MG, UNK
  5. YASMIN [Suspect]
     Indication: PREMENSTRUAL SYNDROME
  6. NSAID'S [Concomitant]
     Dosage: UNK
     Dates: start: 19730101
  7. YASMIN [Suspect]
     Indication: MENSTRUAL CYCLE MANAGEMENT
  8. YASMIN [Suspect]
     Indication: MENORRHAGIA
  9. PHENERGAN [Concomitant]
     Dosage: UNK
     Dates: start: 20021001

REACTIONS (2)
  - PULMONARY EMBOLISM [None]
  - PLEURITIC PAIN [None]
